FAERS Safety Report 15476075 (Version 1)
Quarter: 2018Q4

REPORT INFORMATION
  Report Type: Report from Study
  Country: MX (occurrence: MX)
  Receive Date: 20181009
  Receipt Date: 20181009
  Transmission Date: 20190205
  Serious: Yes (Other)
  Sender: FDA-Public Use
  Company Number: PHHY2018MX118696

PATIENT
  Sex: Female

DRUGS (1)
  1. CO-DIOVAN [Suspect]
     Active Substance: HYDROCHLOROTHIAZIDE\VALSARTAN
     Indication: HYPERTENSION
     Dosage: 1 DF, QD (12.5 MG HYDROCHLOROTHIAZIDE, 320 MG VALSARTAN) 2 YEARS AGO APPROXIMATELY
     Route: 048

REACTIONS (1)
  - Diabetes mellitus inadequate control [Unknown]
